FAERS Safety Report 19009061 (Version 8)
Quarter: 2022Q4

REPORT INFORMATION
  Report Type: Spontaneous
  Country: CA (occurrence: CA)
  Receive Date: 20210316
  Receipt Date: 20221227
  Transmission Date: 20230113
  Serious: Yes (Disabling, Other)
  Sender: FDA-Public Use
  Company Number: CA-CELLTRION INC.-2020CA024995

PATIENT

DRUGS (33)
  1. INFLECTRA [Suspect]
     Active Substance: INFLIXIMAB-DYYB
     Indication: Crohn^s disease
     Dosage: 10 MG/KG AT 0, 2, 6 WEEKS, THEN 5 MG/KG EVERY 8 WEEKS
     Route: 042
     Dates: start: 20200808, end: 20200917
  2. INFLECTRA [Suspect]
     Active Substance: INFLIXIMAB-DYYB
     Dosage: 10 MG/KG AT 0, 2, 6 WEEKS, THEN 5 MG/KG EVERY 8 WEEKS
     Route: 042
     Dates: start: 20200821
  3. INFLECTRA [Suspect]
     Active Substance: INFLIXIMAB-DYYB
     Dosage: 10 MG/KG AT 0, 2, 6 WEEKS, THEN 5 MG/KG EVERY 8 WEEKS
     Route: 042
     Dates: start: 20200917
  4. INFLECTRA [Suspect]
     Active Substance: INFLIXIMAB-DYYB
     Dosage: 10 MG/KG AT 0, 2, 6 WEEKS, THEN 5 MG/KG EVERY 8 WEEKS
     Route: 042
     Dates: start: 20201112
  5. INFLECTRA [Suspect]
     Active Substance: INFLIXIMAB-DYYB
     Dosage: 5 MG/KG, EVERY 8 WEEKS
     Route: 042
     Dates: start: 20201112, end: 20210623
  6. INFLECTRA [Suspect]
     Active Substance: INFLIXIMAB-DYYB
     Dosage: 10 MG/KG AT 0, 2, 6 WEEKS, THEN 5 MG/KG EVERY 8 WEEKS
     Route: 042
     Dates: start: 20210107
  7. INFLECTRA [Suspect]
     Active Substance: INFLIXIMAB-DYYB
     Dosage: 10 MG/KG AT 0, 2, 6 WEEKS, THEN 5 MG/KG EVERY 8 WEEKS
     Route: 042
     Dates: start: 20210305
  8. INFLECTRA [Suspect]
     Active Substance: INFLIXIMAB-DYYB
     Dosage: 10 MG/KG AT 0, 2, 6 WEEKS, THEN 5 MG/KG EVERY 8 WEEKS
     Route: 042
     Dates: start: 20210429
  9. INFLECTRA [Suspect]
     Active Substance: INFLIXIMAB-DYYB
     Dosage: 10 MG/KG AT 0, 2, 6 WEEKS, THEN 5 MG/KG EVERY 8 WEEKS
     Route: 042
     Dates: start: 20210623
  10. INFLECTRA [Suspect]
     Active Substance: INFLIXIMAB-DYYB
     Dosage: 400 MG, EVERY 8 WEEKS, 5 MG/KG
     Route: 042
     Dates: start: 20210819
  11. INFLECTRA [Suspect]
     Active Substance: INFLIXIMAB-DYYB
     Dosage: 10 MG/KG AT 0, 2, 6 WEEKS, THEN 5 MG/KG EVERY 8 WEEKS
     Route: 042
     Dates: start: 20220204
  12. INFLECTRA [Suspect]
     Active Substance: INFLIXIMAB-DYYB
     Dosage: 5 MG/KG, EVERY 8 WEEKS
     Route: 042
     Dates: start: 20220204
  13. INFLECTRA [Suspect]
     Active Substance: INFLIXIMAB-DYYB
     Dosage: 5 MG/KG, EVERY 8 WEEKS
     Route: 042
     Dates: start: 20220406
  14. INFLECTRA [Suspect]
     Active Substance: INFLIXIMAB-DYYB
     Dosage: 5 MG/KG, EVERY 8 WEEKS
     Route: 042
     Dates: start: 20220601
  15. INFLECTRA [Suspect]
     Active Substance: INFLIXIMAB-DYYB
     Dosage: 400 MG, EVERY 8 WEEKS, 5 MG/KG
     Route: 042
     Dates: start: 20220921
  16. INFLECTRA [Suspect]
     Active Substance: INFLIXIMAB-DYYB
     Dosage: 400 MG, EVERY 8 WEEKS, 5 MG/KG
     Route: 042
     Dates: start: 20221116
  17. AMOXICILLIN\CLAVULANATE POTASSIUM [Concomitant]
     Active Substance: AMOXICILLIN\CLAVULANATE POTASSIUM
     Dosage: UNK
     Route: 065
  18. ATORVASTATIN [Concomitant]
     Active Substance: ATORVASTATIN
     Dosage: 20 MG
     Route: 048
  19. AMLODIPINE [Concomitant]
     Active Substance: AMLODIPINE BESYLATE
     Dosage: 5 MG
     Route: 048
  20. PREDNISONE [Concomitant]
     Active Substance: PREDNISONE
     Dosage: 1 DF, TAPER DOSEDOSAGE NOT AVAILABLE
     Route: 065
     Dates: start: 202006
  21. BISOPROLOL [Concomitant]
     Active Substance: BISOPROLOL
     Dosage: 1 DF, DOSAGE NOT AVAILABLE
     Route: 065
  22. BISOPROLOL [Concomitant]
     Active Substance: BISOPROLOL
     Dosage: 1 DF, 2.5 MG
     Route: 048
  23. BETAHISTINE [Concomitant]
     Active Substance: BETAHISTINE
     Dosage: 4 MG
     Route: 048
  24. CALCIUM [Concomitant]
     Active Substance: CALCIUM
     Dosage: 1 DF, DOSAGE INFORMATION FOR CALCIUM NOT AVAILABLE
     Route: 065
  25. CALCIUM [Concomitant]
     Active Substance: CALCIUM
     Dosage: 500 MG
     Route: 048
  26. FOLIC ACID [Concomitant]
     Active Substance: FOLIC ACID
     Dosage: 1 DF, DOSAGE INFORMATION FOR FOLIC ACID NOT AVAILABLE
     Route: 065
  27. FOLIC ACID [Concomitant]
     Active Substance: FOLIC ACID
     Dosage: 1 MG
     Route: 048
  28. METHOTREXATE [Concomitant]
     Active Substance: METHOTREXATE
     Dosage: 1 DF, DOSAGE INFORMATION NOT AVAILABLE FOR METHOTREXATE
     Route: 065
     Dates: start: 20200723
  29. METHOTREXATE [Concomitant]
     Active Substance: METHOTREXATE
     Dosage: 10 MG
     Route: 048
     Dates: start: 20200723
  30. NITROFURANTOIN [Concomitant]
     Active Substance: NITROFURANTOIN
     Dosage: 100 MG
     Route: 048
  31. PANTOPRAZOLE [Concomitant]
     Active Substance: PANTOPRAZOLE
     Dosage: 40 MG
     Route: 048
  32. RISEDRONATE SODIUM [Concomitant]
     Active Substance: RISEDRONATE SODIUM
     Dosage: 1 DF, DOSAGE INFORMATION FOR RISEDRONATE NOT AVAILABLE
     Route: 065
  33. VITAMIN D3 [Concomitant]
     Active Substance: CHOLECALCIFEROL
     Dosage: 800 IU
     Route: 048

REACTIONS (12)
  - Intestinal resection [Recovered/Resolved]
  - Foot fracture [Not Recovered/Not Resolved]
  - Fall [Recovered/Resolved with Sequelae]
  - Off label use [Unknown]
  - Off label use [Unknown]
  - Intentional product use issue [Unknown]
  - Oropharyngeal pain [Not Recovered/Not Resolved]
  - Oxygen saturation decreased [Unknown]
  - Blood pressure increased [Unknown]
  - Heart rate decreased [Unknown]
  - COVID-19 [Unknown]
  - Walking aid user [Unknown]

NARRATIVE: CASE EVENT DATE: 20200808
